FAERS Safety Report 12462256 (Version 1)
Quarter: 2016Q2

REPORT INFORMATION
  Report Type: Spontaneous
  Country: US (occurrence: US)
  Receive Date: 20160613
  Receipt Date: 20160613
  Transmission Date: 20160815
  Serious: No
  Sender: FDA-Public Use
  Company Number: US-CARDINAL HEALTH 414, LLC-1053758

PATIENT
  Age: 66 Year
  Sex: Male
  Weight: 50 kg

DRUGS (17)
  1. TECHNETIUM TC-99M SESTAMIBI KIT [Suspect]
     Active Substance: TECHNETIUM TC-99M SESTAMIBI
     Indication: SCAN MYOCARDIAL PERFUSION
     Route: 040
     Dates: start: 20160314, end: 20160314
  2. REGADENOSON [Concomitant]
     Active Substance: REGADENOSON
     Dates: start: 20160314
  3. ALLOPURINOL. [Concomitant]
     Active Substance: ALLOPURINOL
     Route: 048
  4. NIFEDIPINE. [Concomitant]
     Active Substance: NIFEDIPINE
     Route: 048
  5. ACETAMINOPHEN. [Concomitant]
     Active Substance: ACETAMINOPHEN
     Route: 048
  6. CLONIDINE. [Concomitant]
     Active Substance: CLONIDINE
     Route: 048
  7. METOPROLOL. [Concomitant]
     Active Substance: METOPROLOL
     Route: 048
  8. CLOPIDOGREL [Concomitant]
     Active Substance: CLOPIDOGREL BISULFATE
     Route: 048
  9. FUROSEMIDE. [Concomitant]
     Active Substance: FUROSEMIDE
     Route: 048
  10. INSULIN GLARGINE [Concomitant]
     Active Substance: INSULIN GLARGINE
     Route: 058
  11. ATORVASTATIN CALCIUM. [Concomitant]
     Active Substance: ATORVASTATIN CALCIUM
     Route: 048
  12. ISOSORBIDE MONONITRATE. [Concomitant]
     Active Substance: ISOSORBIDE MONONITRATE
     Route: 048
  13. LACTULOSE. [Concomitant]
     Active Substance: LACTULOSE
     Route: 048
  14. PREDNISONE. [Concomitant]
     Active Substance: PREDNISONE
     Route: 048
  15. TEMAZEPAM. [Concomitant]
     Active Substance: TEMAZEPAM
     Route: 048
  16. ASPIRIN 81 MG [Concomitant]
     Active Substance: ASPIRIN
     Route: 048
  17. LEVOTHYROXINE. [Concomitant]
     Active Substance: LEVOTHYROXINE
     Route: 048

REACTIONS (5)
  - Muscle spasms [Recovered/Resolved]
  - Contrast media reaction [None]
  - Cyanosis [Recovered/Resolved]
  - Pain in extremity [Recovered/Resolved]
  - Pulse absent [None]

NARRATIVE: CASE EVENT DATE: 20160314
